FAERS Safety Report 9435384 (Version 1)
Quarter: 2013Q3

REPORT INFORMATION
  Report Type: Report from Study
  Country: CA (occurrence: CA)
  Receive Date: 20130801
  Receipt Date: 20130801
  Transmission Date: 20140515
  Serious: Yes (Other)
  Sender: FDA-Public Use
  Company Number: CA-JNJFOC-20130715755

PATIENT
  Sex: Female
  Weight: 90.8 kg

DRUGS (8)
  1. REMICADE [Suspect]
     Indication: COLITIS ULCERATIVE
     Route: 042
     Dates: start: 20130418
  2. WARFARIN [Concomitant]
     Route: 065
  3. PENTASA [Concomitant]
     Route: 065
  4. TRAMADOL [Concomitant]
     Route: 065
  5. IMURAN [Concomitant]
     Route: 065
  6. T-3 [Concomitant]
     Route: 065
  7. IRON [Concomitant]
     Route: 065
  8. VITAMIN B [Concomitant]
     Route: 065

REACTIONS (2)
  - Pulmonary thrombosis [Recovering/Resolving]
  - Deep vein thrombosis [Not Recovered/Not Resolved]
